FAERS Safety Report 13674691 (Version 2)
Quarter: 2017Q2

REPORT INFORMATION
  Report Type: Report from Study
  Country: US (occurrence: US)
  Receive Date: 20170621
  Receipt Date: 20170629
  Transmission Date: 20170830
  Serious: No
  Sender: FDA-Public Use
  Company Number: US-AMGEN-USASL2017091009

PATIENT
  Age: 69 Year
  Sex: Female
  Weight: 51.25 kg

DRUGS (1)
  1. ENBREL [Suspect]
     Active Substance: ETANERCEPT
     Indication: PSORIATIC ARTHROPATHY
     Dosage: 50 MG, QWK
     Route: 065
     Dates: start: 20170612

REACTIONS (8)
  - Chest discomfort [Recovered/Resolved]
  - Miliaria [Recovered/Resolved]
  - Nocturia [Unknown]
  - Pain [Recovered/Resolved]
  - Injection site bruising [Unknown]
  - Injection site discomfort [Unknown]
  - Injection site pain [Unknown]
  - Fatigue [Not Recovered/Not Resolved]

NARRATIVE: CASE EVENT DATE: 201706
